FAERS Safety Report 25868918 (Version 1)
Quarter: 2025Q4

REPORT INFORMATION
  Report Type: Spontaneous
  Country: US (occurrence: US)
  Receive Date: 20251001
  Receipt Date: 20251001
  Transmission Date: 20260118
  Serious: No
  Sender: BRISTOL-MYERS SQUIBB COMPANY
  Company Number: US-BRISTOL-MYERS SQUIBB COMPANY-2025-133986

PATIENT
  Age: 88 Year
  Sex: Female

DRUGS (3)
  1. ORENCIA [Suspect]
     Active Substance: ABATACEPT
     Indication: Rheumatoid arthritis
     Dosage: CODE UNIT: 125 MG/ML
     Dates: start: 202508
  2. ORENCIA [Suspect]
     Active Substance: ABATACEPT
  3. ADALIMUMAB-ADAZ [Concomitant]
     Active Substance: ADALIMUMAB-ADAZ
     Indication: Product used for unknown indication
     Dosage: ADALIMUMAB-ADAZ PENS INJ

REACTIONS (4)
  - Dry skin [Unknown]
  - Rash [Unknown]
  - Joint swelling [Unknown]
  - Arthralgia [Unknown]
